FAERS Safety Report 9246016 (Version 1)
Quarter: 2013Q2

REPORT INFORMATION
  Report Type: Report from Study
  Country: GB (occurrence: GB)
  Receive Date: 20130422
  Receipt Date: 20130422
  Transmission Date: 20140414
  Serious: Yes (Death)
  Sender: FDA-Public Use
  Company Number: GB-ROCHE-GNE017327

PATIENT
  Age: 61 Year
  Sex: Male

DRUGS (3)
  1. ALTEPLASE [Suspect]
     Indication: PERIPHERAL ARTERIAL OCCLUSIVE DISEASE
     Dosage: BOLUS DOSE IN 20 ML DILUENT
     Route: 042
  2. ALTEPLASE [Suspect]
     Dosage: CONTINUOUS INFUSION OF 1 MG/HR
     Route: 042
  3. HEPARIN [Concomitant]
     Dosage: 200 UNITS/HR
     Route: 065

REACTIONS (1)
  - Cerebral haematoma [Fatal]
